FAERS Safety Report 6717689-4 (Version None)
Quarter: 2010Q2

REPORT INFORMATION
  Report Type: 
  Country: None (occurrence: None)
  Receive Date: 20100507
  Receipt Date: 20100507
  Transmission Date: 20101027
  Serious: Yes (Hospitalization, Other)
  Sender: FDA-Public Use
  Company Number: None

PATIENT
  Age: 41 Year
  Sex: Female
  Weight: 54.4316 kg

DRUGS (1)
  1. ZYPREXA [Suspect]
     Indication: SCHIZOPHRENIA
     Dosage: 10MG DAILY PO
     Route: 048

REACTIONS (5)
  - ABASIA [None]
  - DYSSTASIA [None]
  - POLYURIA [None]
  - TARDIVE DYSKINESIA [None]
  - WHITE BLOOD CELL COUNT DECREASED [None]
